FAERS Safety Report 23516540 (Version 1)
Quarter: 2024Q1

REPORT INFORMATION
  Report Type: Spontaneous
  Country: US (occurrence: None)
  Receive Date: 20240212
  Receipt Date: 20240212
  Transmission Date: 20240410
  Serious: Yes (Hospitalization, Other)
  Sender: FDA-Public Use
  Company Number: None

PATIENT
  Sex: Male

DRUGS (4)
  1. BCG VACCINE [Suspect]
     Active Substance: BCG VACCINE
  2. KEYTRUDA [Suspect]
     Active Substance: PEMBROLIZUMAB
  3. PEMETREXED [Suspect]
     Active Substance: PEMETREXED
  4. CARBOPLATIN [Suspect]
     Active Substance: CARBOPLATIN

REACTIONS (7)
  - Back pain [None]
  - Immune-mediated lung disease [None]
  - Quality of life decreased [None]
  - Intervertebral discitis [None]
  - Drug ineffective [None]
  - Aplasia [None]
  - Pleural thickening [None]

NARRATIVE: CASE EVENT DATE: 20170901
